FAERS Safety Report 7970638-3 (Version None)
Quarter: 2011Q4

REPORT INFORMATION
  Report Type: 
  Country: None (occurrence: None)
  Receive Date: 20111212
  Receipt Date: 20111207
  Transmission Date: 20120403
  Serious: No
  Sender: FDA-Public Use
  Company Number: US-BAYER-2011-118607

PATIENT

DRUGS (2)
  1. ALEVE (CAPLET) [Suspect]
     Dosage: 6 DF, UNK
     Route: 048
  2. TYLENOL 1 [Suspect]
     Dosage: 5 DF, UNK

REACTIONS (1)
  - NO ADVERSE EVENT [None]
